FAERS Safety Report 8909587 (Version 1)
Quarter: 2012Q4

REPORT INFORMATION
  Report Type: 
  Country: ZA (occurrence: ZA)
  Receive Date: 20121115
  Receipt Date: 20121115
  Transmission Date: 20130627
  Serious: Yes (Hospitalization, Other)
  Sender: FDA-Public Use
  Company Number: ZA-JNJFOC-20121010328

PATIENT
  Age: 34 Year
  Sex: Male

DRUGS (10)
  1. RISPERDAL CONSTA [Suspect]
     Indication: PSYCHOTIC DISORDER
     Dosage: received two 25mg injections
     Route: 030
  2. RISPERDAL CONSTA [Suspect]
     Indication: PSYCHOTIC DISORDER
     Route: 030
  3. RISPERDAL CONSTA [Suspect]
     Indication: PSYCHOTIC DISORDER
     Route: 030
     Dates: start: 201203
  4. EPILIM [Concomitant]
     Dosage: in the morning
     Route: 065
  5. EPILIM [Concomitant]
     Route: 065
  6. EPILIM [Concomitant]
     Route: 065
  7. SULPIRIDE [Concomitant]
     Route: 065
  8. LITHIUM [Concomitant]
     Route: 065
  9. DISIPAL [Concomitant]
     Route: 065
  10. CLOZAPINE [Concomitant]
     Route: 065

REACTIONS (2)
  - Drug ineffective [Not Recovered/Not Resolved]
  - Inappropriate schedule of drug administration [Recovered/Resolved]
